FAERS Safety Report 6400025-0 (Version None)
Quarter: 2009Q4

REPORT INFORMATION
  Report Type: 
  Country: None (occurrence: None)
  Receive Date: 20091014
  Receipt Date: 20091006
  Transmission Date: 20100525
  Serious: Yes (Hospitalization)
  Sender: FDA-Public Use
  Company Number: A0764865A

PATIENT
  Age: 51 Year
  Sex: Female
  Weight: 81.8 kg

DRUGS (4)
  1. AVANDIA [Suspect]
     Route: 048
     Dates: start: 20000101, end: 20020228
  2. AMARYL [Concomitant]
     Dosage: 4MG TWICE PER DAY
     Dates: start: 19930101
  3. ACCUPRIL [Concomitant]
  4. GLUCOPHAGE [Concomitant]

REACTIONS (2)
  - CARDIAC FAILURE CONGESTIVE [None]
  - CARDIOMYOPATHY [None]
